FAERS Safety Report 8398183-4 (Version None)
Quarter: 2012Q2

REPORT INFORMATION
  Report Type: 
  Country: None (occurrence: None)
  Receive Date: 20120323
  Receipt Date: 20110111
  Transmission Date: 20120825
  Serious: Yes (Hospitalization)
  Sender: FDA-Public Use
  Company Number: 163-21880-11011273

PATIENT
  Age: 55 Year
  Sex: Male

DRUGS (6)
  1. ONDANSETRON [Concomitant]
  2. AMLODIPINE/BENAZ (AMLODIPINE W/BENAZEPRIL) [Concomitant]
  3. REVLIMID [Suspect]
     Indication: MULTIPLE MYELOMA
     Dosage: 10 MG, 1 IN 1 D, PO; 10 MG, 1 IN 1 D, PO
     Route: 048
     Dates: start: 20101008, end: 20101227
  4. REVLIMID [Suspect]
     Indication: MULTIPLE MYELOMA
     Dosage: 10 MG, 1 IN 1 D, PO; 10 MG, 1 IN 1 D, PO
     Route: 048
     Dates: start: 20110112
  5. TAMOXIFEN CITRATE [Concomitant]
  6. WARFARIN SODIUM [Concomitant]

REACTIONS (1)
  - PNEUMONIA [None]
